FAERS Safety Report 16882453 (Version 1)
Quarter: 2019Q4

REPORT INFORMATION
  Report Type: Spontaneous
  Country: US (occurrence: US)
  Receive Date: 20191003
  Receipt Date: 20191003
  Transmission Date: 20200122
  Serious: No
  Sender: FDA-Public Use
  Company Number: US-JAZZ-JPI-P-029609

PATIENT
  Sex: Female
  Weight: 87.27 kg

DRUGS (4)
  1. XYREM [Suspect]
     Active Substance: SODIUM OXYBATE
     Indication: SOMNOLENCE
  2. VENLAFAXINE [Concomitant]
     Active Substance: VENLAFAXINE HYDROCHLORIDE
  3. XYREM [Suspect]
     Active Substance: SODIUM OXYBATE
     Indication: NARCOLEPSY
     Dosage: SINGLE UNKNOWN DOSE
     Route: 048
     Dates: start: 20110610
  4. XYREM [Suspect]
     Active Substance: SODIUM OXYBATE
     Indication: CATAPLEXY
     Dosage: 4 G, BID
     Route: 048

REACTIONS (3)
  - Feeling abnormal [Unknown]
  - Feeling drunk [Unknown]
  - Product use in unapproved indication [Unknown]
